FAERS Safety Report 13080644 (Version 1)
Quarter: 2017Q1

REPORT INFORMATION
  Report Type: Spontaneous
  Country: US (occurrence: US)
  Receive Date: 20170103
  Receipt Date: 20170103
  Transmission Date: 20170428
  Serious: Yes (Other)
  Sender: FDA-Public Use
  Company Number: US-BAYER-2017-000031

PATIENT
  Age: 50 Year
  Sex: Female

DRUGS (4)
  1. REVATIO [Concomitant]
     Active Substance: SILDENAFIL CITRATE
     Dosage: UNK
  2. SILDENAFIL. [Concomitant]
     Active Substance: SILDENAFIL
     Dosage: UNK
  3. AMBRISENTAN [Suspect]
     Active Substance: AMBRISENTAN
     Indication: PRODUCT USED FOR UNKNOWN INDICATION
     Dosage: 10 MG, QD
     Route: 065
  4. ADEMPAS [Suspect]
     Active Substance: RIOCIGUAT
     Indication: PRODUCT USED FOR UNKNOWN INDICATION
     Dosage: 1 MG, BID
     Route: 065

REACTIONS (14)
  - Palpitations [None]
  - Nausea [None]
  - Abdominal distension [None]
  - Dyspepsia [None]
  - Chest discomfort [None]
  - Constipation [None]
  - Chest pain [None]
  - Abdominal pain [None]
  - Blood pressure decreased [None]
  - Abdominal discomfort [None]
  - Dizziness [None]
  - Fluid retention [None]
  - Headache [None]
  - Dyspnoea [None]
